FAERS Safety Report 6391194-X (Version None)
Quarter: 2009Q4

REPORT INFORMATION
  Report Type: 
  Country: None (occurrence: None)
  Receive Date: 20091005
  Receipt Date: 20090919
  Transmission Date: 20100525
  Serious: Yes (Hospitalization)
  Sender: FDA-Public Use
  Company Number: AE-2009-213

PATIENT
  Age: 69 Year
  Sex: Male

DRUGS (6)
  1. ATENOLOL [Suspect]
  2. RAMIPRIL [Suspect]
  3. ACETYLSALICYLIC ACID [Suspect]
  4. AMITRIPTYLINE [Suspect]
  5. ATORVASTATIN [Suspect]
  6. FELODIPINE [Suspect]

REACTIONS (3)
  - ANGIOEDEMA [None]
  - DYSKINESIA [None]
  - SALIVARY HYPERSECRETION [None]
